FAERS Safety Report 16346549 (Version 1)
Quarter: 2019Q2

REPORT INFORMATION
  Report Type: Spontaneous
  Country: DE (occurrence: DE)
  Receive Date: 20190523
  Receipt Date: 20190523
  Transmission Date: 20190711
  Serious: Yes (Other)
  Sender: FDA-Public Use
  Company Number: PHHY2019DE115024

PATIENT
  Sex: Female

DRUGS (1)
  1. EXFORGE [Suspect]
     Active Substance: AMLODIPINE BESYLATE\VALSARTAN
     Indication: PRODUCT USED FOR UNKNOWN INDICATION
     Dosage: UNK UNK, QD
     Route: 065

REACTIONS (7)
  - Apnoea [Unknown]
  - Restlessness [Unknown]
  - Product dose omission [Unknown]
  - Hypotension [Unknown]
  - Anxiety [Unknown]
  - Listless [Unknown]
  - Blood pressure increased [Unknown]
